FAERS Safety Report 4414456-1 (Version None)
Quarter: 2004Q2

REPORT INFORMATION
  Report Type: 
  Country: None (occurrence: None)
  Receive Date: 20040630
  Receipt Date: 20040422
  Transmission Date: 20050107
  Serious: Yes (Other)
  Sender: FDA-Public Use
  Company Number: 2004023059

PATIENT
  Age: 68 Year
  Sex: Female

DRUGS (5)
  1. ZOLOFT [Suspect]
     Indication: NERVOUSNESS
     Dosage: 25 MG (DAILY) ORAL
     Route: 048
     Dates: start: 20040325
  2. ANTIHYPERTENSIVES (ANTIHYPERTENSIVES) [Suspect]
     Indication: BLOOD PRESSURE
  3. CANDESARTAN CILEXETIL [Concomitant]
  4. AMLODIPINE BESYLATE [Concomitant]
  5. INSULIN [Concomitant]

REACTIONS (3)
  - ANOREXIA [None]
  - WEIGHT DECREASED [None]
  - WEIGHT INCREASED [None]
